FAERS Safety Report 10665074 (Version 1)
Quarter: 2014Q4

REPORT INFORMATION
  Report Type: Spontaneous
  Country: US (occurrence: US)
  Receive Date: 20141219
  Receipt Date: 20141219
  Transmission Date: 20150529
  Serious: No
  Sender: FDA-Public Use
  Company Number: US-GLAXOSMITHKLINE-A1050254A

PATIENT

DRUGS (5)
  1. ARZERRA [Suspect]
     Active Substance: OFATUMUMAB
     Indication: CHRONIC LYMPHOCYTIC LEUKAEMIA
     Route: 042
     Dates: start: 20131014, end: 20131023
  2. DIFLUCAN [Concomitant]
     Active Substance: FLUCONAZOLE
  3. ZOFRAN [Concomitant]
     Active Substance: ONDANSETRON HYDROCHLORIDE
  4. ACYCLOVIR. [Concomitant]
     Active Substance: ACYCLOVIR
  5. STOOL SOFTENER [Concomitant]
     Active Substance: DOCUSATE CALCIUM

REACTIONS (1)
  - Neutropenia [Unknown]

NARRATIVE: CASE EVENT DATE: 20131110
